FAERS Safety Report 11455442 (Version 2)
Quarter: 2015Q3

REPORT INFORMATION
  Report Type: Spontaneous
  Country: DK (occurrence: DK)
  Receive Date: 20150903
  Receipt Date: 20150911
  Transmission Date: 20151125
  Serious: No
  Sender: FDA-Public Use
  Company Number: DK-JNJFOC-20150822573

PATIENT
  Sex: Male

DRUGS (1)
  1. FENTANYL. [Suspect]
     Active Substance: FENTANYL
     Indication: PAIN
     Route: 062

REACTIONS (4)
  - Wrong technique in product usage process [Unknown]
  - Hyperhidrosis [Unknown]
  - Product quality issue [Unknown]
  - Drug ineffective [Unknown]
